FAERS Safety Report 21262107 (Version 1)
Quarter: 2022Q3

REPORT INFORMATION
  Report Type: Report from Study
  Country: US (occurrence: US)
  Receive Date: 20220827
  Receipt Date: 20220827
  Transmission Date: 20221026
  Serious: Yes (Other)
  Sender: FDA-Public Use
  Company Number: US-ABBVIE-22K-163-4515681-00

PATIENT
  Age: 54 Year
  Sex: Male

DRUGS (1)
  1. SKYRIZI [Suspect]
     Active Substance: RISANKIZUMAB-RZAA
     Indication: Psoriasis
     Dosage: EVERY 12 WEEKS
     Route: 058
     Dates: start: 2020

REACTIONS (9)
  - Basal cell carcinoma [Unknown]
  - Electrodesiccation [Unknown]
  - Phlebectomy [Unknown]
  - Basal cell carcinoma [Unknown]
  - Electrodesiccation [Unknown]
  - Immunosuppression [Unknown]
  - Pain [Unknown]
  - Pruritus [Unknown]
  - Burning sensation [Unknown]

NARRATIVE: CASE EVENT DATE: 20210617
